FAERS Safety Report 4831554-9 (Version None)
Quarter: 2005Q4

REPORT INFORMATION
  Report Type: 
  Country: None (occurrence: None)
  Receive Date: 20051118
  Receipt Date: 20051107
  Transmission Date: 20060501
  Serious: Yes (Hospitalization, Other)
  Sender: FDA-Public Use
  Company Number: US-JNJFOC-20051003640

PATIENT
  Sex: Female
  Weight: 90.72 kg

DRUGS (13)
  1. REMICADE [Suspect]
     Route: 042
  2. REMICADE [Suspect]
     Route: 042
  3. REMICADE [Suspect]
     Route: 042
  4. LASIX [Concomitant]
  5. POTASSIUM CHLORIDE [Concomitant]
  6. ASPIRIN [Concomitant]
  7. IRON [Concomitant]
  8. ALTACE [Concomitant]
  9. FOLIC ACID [Concomitant]
  10. METHOTREXATE [Concomitant]
  11. LIPITOR [Concomitant]
  12. ALBUTEROL [Concomitant]
  13. COREG [Concomitant]

REACTIONS (4)
  - CARDIAC OPERATION [None]
  - DEPENDENCE ON RESPIRATOR [None]
  - DIALYSIS [None]
  - RENAL FAILURE [None]
